FAERS Safety Report 15790504 (Version 2)
Quarter: 2020Q2

REPORT INFORMATION
  Report Type: Spontaneous
  Country: BE (occurrence: BE)
  Receive Date: 20190104
  Receipt Date: 20200511
  Transmission Date: 20200713
  Serious: Yes (Other)
  Sender: FDA-Public Use
  Company Number: BE-PFIZER INC-2019002033

PATIENT
  Age: 13 Year
  Sex: Female

DRUGS (8)
  1. THIOTEPA. [Concomitant]
     Active Substance: THIOTEPA
     Dosage: UNK
  2. CYTARABINE. [Concomitant]
     Active Substance: CYTARABINE
     Indication: ACUTE LYMPHOCYTIC LEUKAEMIA
     Dosage: 16 INTRATHECAL CHEMOTHERAPY
     Route: 037
  3. SOLU-MEDROL [Concomitant]
     Active Substance: METHYLPREDNISOLONE SODIUM SUCCINATE
     Indication: NERVOUS SYSTEM DISORDER PROPHYLAXIS
     Dosage: 1 G/M2, PER DAY (FOR 3 CONSECUTIVE DAYS)
  4. METHOTREXATE SODIUM. [Suspect]
     Active Substance: METHOTREXATE SODIUM
     Indication: ACUTE LYMPHOCYTIC LEUKAEMIA
     Dosage: 4 COURSES OF HIGH DOSE IV METHOTREXATE (5 G/SQM/COURSE) 5 G/M2
     Route: 042
  5. VINCRISTINE [Concomitant]
     Active Substance: VINCRISTINE
     Indication: ACUTE LYMPHOCYTIC LEUKAEMIA
     Dosage: UNK
  6. ASPARAGINASE [Concomitant]
     Active Substance: ASPARAGINASE
     Indication: ACUTE LYMPHOCYTIC LEUKAEMIA
     Dosage: UNK
  7. FOLINIC ACID [Concomitant]
     Active Substance: LEUCOVORIN
     Indication: ACUTE LYMPHOCYTIC LEUKAEMIA
     Dosage: UNK
  8. METHOTREXATE SODIUM. [Suspect]
     Active Substance: METHOTREXATE SODIUM
     Dosage: 16 INTRATHECAL CHEMOTHERAPYUNK
     Route: 037

REACTIONS (3)
  - Myelitis transverse [Recovering/Resolving]
  - Myelopathy [Recovering/Resolving]
  - Neurotoxicity [Recovering/Resolving]
